FAERS Safety Report 23569317 (Version 2)
Quarter: 2024Q1

REPORT INFORMATION
  Report Type: Spontaneous
  Country: US (occurrence: US)
  Receive Date: 20240227
  Receipt Date: 20240315
  Transmission Date: 20240409
  Serious: No
  Sender: FDA-Public Use
  Company Number: US-LEGACY PHARMA INC.-2024LEG00005

PATIENT
  Sex: Female

DRUGS (2)
  1. BETAPACE [Suspect]
     Active Substance: SOTALOL HYDROCHLORIDE
  2. SOTALOL [Suspect]
     Active Substance: SOTALOL

REACTIONS (1)
  - Drug ineffective [Unknown]
